FAERS Safety Report 4446550-3 (Version None)
Quarter: 2004Q3

REPORT INFORMATION
  Report Type: 
  Country: None (occurrence: None)
  Receive Date: 20040908
  Receipt Date: 20040824
  Transmission Date: 20050211
  Serious: Yes (Hospitalization, Disabling)
  Sender: FDA-Public Use
  Company Number: 200412555GDS

PATIENT
  Age: 72 Year
  Sex: Female

DRUGS (6)
  1. CIPROFLOXACIN [Suspect]
     Indication: ESCHERICHIA SEPSIS
  2. LINEZOLID [Suspect]
     Indication: STAPHYLOCOCCAL INFECTION
  3. RIFAMPICIN [Suspect]
     Indication: STAPHYLOCOCCAL INFECTION
  4. INSULIN [Concomitant]
  5. CITALOPRAM [Concomitant]
  6. LORMETAZEPAM [Concomitant]

REACTIONS (4)
  - DRUG INTERACTION [None]
  - DRUG TOXICITY [None]
  - OCULAR HYPERTENSION [None]
  - OPTIC NEURITIS [None]
